FAERS Safety Report 15156728 (Version 2)
Quarter: 2019Q3

REPORT INFORMATION
  Report Type: Spontaneous
  Country: US (occurrence: US)
  Receive Date: 20180717
  Receipt Date: 20190730
  Transmission Date: 20191004
  Serious: No
  Sender: FDA-Public Use
  Company Number: US-BAUSCH-BL-2018-015425

PATIENT
  Sex: Male
  Weight: 95.34 kg

DRUGS (1)
  1. XIFAXAN [Suspect]
     Active Substance: RIFAXIMIN
     Indication: POUCHITIS
     Dosage: FOR ABOUT 4 WEEKS
     Route: 065

REACTIONS (4)
  - Off label use [Not Recovered/Not Resolved]
  - Insurance issue [Not Recovered/Not Resolved]
  - Drug effective for unapproved indication [Unknown]
  - Treatment noncompliance [Not Recovered/Not Resolved]
